FAERS Safety Report 17124424 (Version 1)
Quarter: 2019Q4

REPORT INFORMATION
  Report Type: Spontaneous
  Country: US (occurrence: US)
  Receive Date: 20191206
  Receipt Date: 20191206
  Transmission Date: 20200122
  Serious: No
  Sender: FDA-Public Use
  Company Number: US-NOVOPROD-651142

PATIENT
  Age: 70 Year
  Sex: Female
  Weight: 74.84 kg

DRUGS (1)
  1. NOVOLIN 70/30 [Suspect]
     Active Substance: INSULIN HUMAN
     Indication: TYPE 2 DIABETES MELLITUS
     Dosage: 50U BEFORE BREAKFAST AND 30U BEFORE DINNER
     Route: 058

REACTIONS (3)
  - Vomiting [Not Recovered/Not Resolved]
  - Nausea [Not Recovered/Not Resolved]
  - Liquid product physical issue [Unknown]

NARRATIVE: CASE EVENT DATE: 201902
